FAERS Safety Report 4881780-8 (Version None)
Quarter: 2006Q1

REPORT INFORMATION
  Report Type: 
  Country: None (occurrence: None)
  Receive Date: 20060112
  Receipt Date: 20051230
  Transmission Date: 20060701
  Serious: Yes (Hospitalization)
  Sender: FDA-Public Use
  Company Number: 2006003256

PATIENT
  Sex: Female
  Weight: 81.6475 kg

DRUGS (3)
  1. GEODON [Suspect]
     Indication: SCHIZOPHRENIA
     Dosage: 160 MG (80 MG,2 IN 1 D)
  2. VALIUM [Suspect]
     Indication: EYELID FUNCTION DISORDER
  3. ALL OTHER THERAPEUTIC PRODUCTS (ALL OTHER THERAPEUTIC PRODUCTS) [Suspect]
     Indication: ILL-DEFINED DISORDER

REACTIONS (9)
  - ACTIVITIES OF DAILY LIVING IMPAIRED [None]
  - ANXIETY [None]
  - DRUG DOSE OMISSION [None]
  - DYSKINESIA [None]
  - FEELING JITTERY [None]
  - NERVOUSNESS [None]
  - PHOTOPHOBIA [None]
  - SOMNOLENCE [None]
  - TREATMENT NONCOMPLIANCE [None]
